FAERS Safety Report 23597291 (Version 3)
Quarter: 2024Q1

REPORT INFORMATION
  Report Type: Spontaneous
  Country: AT (occurrence: AT)
  Receive Date: 20240305
  Receipt Date: 20240325
  Transmission Date: 20240410
  Serious: Yes (Hospitalization, Other)
  Sender: FDA-Public Use
  Company Number: AT-AMGEN-AUTSP2024032765

PATIENT
  Age: 65 Year
  Sex: Female
  Weight: 80.4 kg

DRUGS (112)
  1. TRASTUZUMAB DERUXTECAN [Suspect]
     Active Substance: TRASTUZUMAB DERUXTECAN
     Indication: Breast cancer metastatic
     Dosage: UNK
     Route: 058
     Dates: start: 20200814, end: 20201015
  2. XGEVA [Suspect]
     Active Substance: DENOSUMAB
     Indication: Breast cancer metastatic
     Dosage: UNK
     Route: 065
     Dates: start: 20170202
  3. XGEVA [Suspect]
     Active Substance: DENOSUMAB
     Dosage: 120 MG, ONCE EVERY 4 WK (LAST ADMINISTARTION ON 10-FEB-2021)
     Route: 042
     Dates: start: 20201230, end: 20210210
  4. PERTUZUMAB [Suspect]
     Active Substance: PERTUZUMAB
     Indication: Breast cancer metastatic
     Dosage: 840 MG, QD
     Route: 040
     Dates: start: 20210317, end: 20210428
  5. PERTUZUMAB [Suspect]
     Active Substance: PERTUZUMAB
     Dosage: 420 MG, QD
     Route: 040
     Dates: start: 20170317, end: 20190213
  6. PERTUZUMAB [Suspect]
     Active Substance: PERTUZUMAB
     Dosage: 840 MG, QD
     Route: 040
     Dates: start: 20200422, end: 20200625
  7. PERTUZUMAB [Suspect]
     Active Substance: PERTUZUMAB
     Dosage: 840 MG, QD (MOST RECENT DOSE PRIOR TO THE EVENT WORSENING OF BRAIN METASTASES: 17/MAR/2017
     Route: 040
     Dates: start: 20170224, end: 20170224
  8. CAPECITABINE [Suspect]
     Active Substance: CAPECITABINE
     Indication: Breast cancer metastatic
     Dosage: 3500 MILLIGRAM, QD (MOST RECENT DOSE PRIOR TO THE EVENT PORT A CATH INFECTION: 08/JAN/2020)
     Route: 048
     Dates: start: 20191002, end: 20200107
  9. CAPECITABINE [Suspect]
     Active Substance: CAPECITABINE
     Dosage: 3000 MILLIGRAM, QD
     Route: 048
     Dates: start: 20200108, end: 20200421
  10. CAPECITABINE [Suspect]
     Active Substance: CAPECITABINE
     Dosage: 2000 MILLIGRAM, QD (OTHER DAILY FOR 2 WEEKS THEN PAUSE FOR 1 WEEK)
     Route: 048
     Dates: start: 20201230, end: 20210203
  11. CAPECITABINE [Suspect]
     Active Substance: CAPECITABINE
     Dosage: 3500 MG, QD
     Route: 048
     Dates: start: 20210210, end: 20210224
  12. FASLODEX [Suspect]
     Active Substance: FULVESTRANT
     Indication: Breast cancer metastatic
     Dosage: 500 MILLIGRAM, QMO (MOST RECENT DOSE PRIOR TO THE EVENT PORT A CATH INFECTION: 16/NOV/2017)
     Route: 030
     Dates: start: 20171116, end: 20191001
  13. FASLODEX [Suspect]
     Active Substance: FULVESTRANT
     Dosage: 500 MILLIGRAM,TWICE A WEEK/MOST RECENT DOSE PRIOR LYMPH NODE METASTATIS AXILLA,PORT A CATH INFECTION
     Route: 030
     Dates: start: 20171002, end: 20171115
  14. HERCEPTIN [Suspect]
     Active Substance: TRASTUZUMAB
     Indication: Breast cancer metastatic
     Dosage: 624 MILLIGRAM Q3WK (MOST RECENT DOSE PRIOR TO THE EVENTS: 10/AUG/2017)
     Route: 042
     Dates: start: 20170224, end: 20170224
  15. HERCEPTIN [Suspect]
     Active Substance: TRASTUZUMAB
     Dosage: 462 MILLIGRAM, Q3WK
     Route: 042
     Dates: start: 20170810, end: 20190213
  16. HERCEPTIN [Suspect]
     Active Substance: TRASTUZUMAB
     Dosage: 432 MILLIGRAM, QD
     Route: 042
     Dates: start: 20170519, end: 20170519
  17. HERCEPTIN [Suspect]
     Active Substance: TRASTUZUMAB
     Dosage: 414 MILLIGRAM, Q3WK
     Route: 042
     Dates: start: 20170609, end: 20170630
  18. HERCEPTIN [Suspect]
     Active Substance: TRASTUZUMAB
     Dosage: 468 MILLIGRAM, QD (MOST RECENT DOSE PRIOR TO THE EVENTS: 10/AUG/2017)
     Route: 042
     Dates: start: 20170317, end: 20170317
  19. HERCEPTIN [Suspect]
     Active Substance: TRASTUZUMAB
     Dosage: 390 MILLIGRAM (DURATION OF UNIT INTERVAL 17 DAYS)
     Route: 042
     Dates: start: 20170410, end: 20170427
  20. HERCEPTIN [Suspect]
     Active Substance: TRASTUZUMAB
     Dosage: 540 MG, ONCE EVERY 3 WK
     Route: 042
     Dates: start: 20200422, end: 20200624
  21. HERCEPTIN [Suspect]
     Active Substance: TRASTUZUMAB
     Dosage: 560 MG, ONCE EVERY 3 WK
     Route: 042
     Dates: start: 20201230, end: 20210210
  22. HERCEPTIN [Suspect]
     Active Substance: TRASTUZUMAB
     Dosage: 624 MG
     Route: 042
     Dates: start: 20170720, end: 20170720
  23. BLEOMYCIN SULFATE [Suspect]
     Active Substance: BLEOMYCIN SULFATE
     Indication: Breast cancer metastatic
     Dosage: 26.85 MILLIGRAM, QD DRUG WAS DISCONTINUED AS PLANNED NUMBER OF CYCLES COMPLETED)
     Route: 040
     Dates: start: 20200519, end: 20200519
  24. BLEOMYCIN SULFATE [Suspect]
     Active Substance: BLEOMYCIN SULFATE
     Dosage: 1 DOSAGE FORM (DRUG WAS DISCONTINUED AS PLANNED NUMBER OF CYCLES COMPLETED)
     Route: 042
     Dates: start: 20210105, end: 20210105
  25. TYKERB [Suspect]
     Active Substance: LAPATINIB DITOSYLATE
     Indication: Breast cancer metastatic
     Dosage: 1000 MILLIGRAM, QD
     Route: 048
     Dates: start: 20200108, end: 20200421
  26. TYKERB [Suspect]
     Active Substance: LAPATINIB DITOSYLATE
     Dosage: 1250 MILLIGRAM, QD (MOST RECENT DOSE PRIOR TO THE EVENT PORT A CATH INFECTION: 08/JAN/2020)
     Route: 048
     Dates: start: 20191002, end: 20200107
  27. NAVELBINE [Suspect]
     Active Substance: VINORELBINE TARTRATE
     Indication: Breast cancer metastatic
     Dosage: 45 MILLIGRAM, Q3WK
     Route: 040
     Dates: start: 20200422, end: 20200722
  28. TAXOTERE [Suspect]
     Active Substance: DOCETAXEL
     Indication: Breast cancer metastatic
     Dosage: 190 MILLIGRAM, Q3WK (MOST RECENT DOSE PRIOR TO THE EVENTS: 09/JUN/2017)
     Route: 040
     Dates: start: 20170224, end: 20170317
  29. TAXOTERE [Suspect]
     Active Substance: DOCETAXEL
     Dosage: 175 MG IN 17 DAYS
     Route: 040
     Dates: start: 20170410, end: 20170427
  30. TAXOTERE [Suspect]
     Active Substance: DOCETAXEL
     Dosage: 370 MG
     Route: 040
     Dates: start: 20170519, end: 20170519
  31. TAXOTERE [Suspect]
     Active Substance: DOCETAXEL
     Dosage: 180 MILLIGRAM, Q3WK
     Route: 040
     Dates: start: 20170609, end: 20170630
  32. TAXOTERE [Suspect]
     Active Substance: DOCETAXEL
     Dosage: 134.25 MILLIGRAM, Q3WK
     Route: 040
     Dates: start: 20210317, end: 20210428
  33. KADCYLA [Suspect]
     Active Substance: ADO-TRASTUZUMAB EMTANSINE
     Indication: Breast cancer metastatic
     Dosage: 270 MILLIGRAM, Q3WK
     Route: 040
     Dates: start: 20190306, end: 20190909
  34. TUCATINIB [Suspect]
     Active Substance: TUCATINIB
     Indication: Breast cancer metastatic
     Dosage: 300 MG (0.5 DAY)
     Route: 048
     Dates: start: 20201230, end: 20210210
  35. DOXIL [Suspect]
     Active Substance: DOXORUBICIN HYDROCHLORIDE
     Indication: Breast cancer metastatic
     Dosage: UNK
     Route: 040
     Dates: start: 20210608, end: 20210608
  36. DROPERIDOL [Concomitant]
     Active Substance: DROPERIDOL
     Indication: Gastrointestinal disorder
     Dosage: UNK
     Route: 065
     Dates: start: 20210612, end: 20210617
  37. NOVALGIN (METAMIZOLE SODIUM) [Concomitant]
     Active Substance: METAMIZOLE SODIUM
     Indication: Product used for unknown indication
     Dosage: 1 DOSAGE FORM
     Route: 065
     Dates: start: 20170329, end: 20180807
  38. NOVALGIN (METAMIZOLE SODIUM) [Concomitant]
     Active Substance: METAMIZOLE SODIUM
     Dosage: UNK
     Route: 065
     Dates: start: 20210608, end: 20210612
  39. NOVALGIN (METAMIZOLE SODIUM) [Concomitant]
     Active Substance: METAMIZOLE SODIUM
     Dosage: UNK
     Route: 065
     Dates: start: 20210618, end: 20210618
  40. DRONABINOL [Concomitant]
     Active Substance: DRONABINOL
     Indication: Product used for unknown indication
     Dosage: UNK
     Route: 065
     Dates: start: 20210608, end: 20210612
  41. METOCLOPRAMIDE HYDROCHLORIDE [Concomitant]
     Active Substance: METOCLOPRAMIDE HYDROCHLORIDE
     Indication: Gastrointestinal disorder
     Dosage: UNK
     Route: 065
     Dates: start: 20200506
  42. METOCLOPRAMIDE HYDROCHLORIDE [Concomitant]
     Active Substance: METOCLOPRAMIDE HYDROCHLORIDE
     Dosage: UNK
     Route: 065
     Dates: start: 20210608, end: 20210623
  43. PREGABALIN [Concomitant]
     Active Substance: PREGABALIN
     Indication: Product used for unknown indication
     Dosage: UNK
     Route: 065
     Dates: start: 20190821, end: 20210616
  44. PREGABALIN [Concomitant]
     Active Substance: PREGABALIN
     Dosage: 25 MG, QD
     Route: 048
     Dates: start: 20170428, end: 20181223
  45. EDOXABAN TOSYLATE [Concomitant]
     Active Substance: EDOXABAN TOSYLATE
     Indication: Product used for unknown indication
     Dosage: UNK
     Route: 065
     Dates: start: 20191120, end: 20200608
  46. EDOXABAN TOSYLATE [Concomitant]
     Active Substance: EDOXABAN TOSYLATE
     Dosage: UNK
     Route: 065
     Dates: start: 20200613, end: 20210611
  47. BETAISODONA [Concomitant]
     Active Substance: POVIDONE-IODINE
     Indication: Skin fissures
     Dosage: UNK
     Route: 065
     Dates: start: 20200430, end: 20200515
  48. TAZOBACTAM [Concomitant]
     Active Substance: TAZOBACTAM
     Indication: Streptococcal sepsis
     Dosage: UNK
     Route: 065
     Dates: start: 20200423, end: 20200504
  49. ZOFRAN [Concomitant]
     Active Substance: ONDANSETRON HYDROCHLORIDE
     Indication: Product used for unknown indication
     Dosage: UNK
     Route: 065
     Dates: start: 20200506
  50. ZOFRAN [Concomitant]
     Active Substance: ONDANSETRON HYDROCHLORIDE
     Dosage: UNK
     Route: 065
     Dates: start: 20210611, end: 20210616
  51. ACETAMINOPHEN [Concomitant]
     Active Substance: ACETAMINOPHEN
     Indication: Product used for unknown indication
     Dosage: UNK
     Route: 065
     Dates: start: 20200506
  52. ACETAMINOPHEN [Concomitant]
     Active Substance: ACETAMINOPHEN
     Dosage: UNK
     Route: 065
     Dates: start: 20210622, end: 20210622
  53. SCOTTOPECT [Concomitant]
     Indication: Cough
     Dosage: UNK
     Route: 065
     Dates: start: 20210611, end: 20210613
  54. MORPHINE HYDROCHLORIDE [Concomitant]
     Active Substance: MORPHINE HYDROCHLORIDE
     Indication: Dyspnoea
     Dosage: UNK
     Route: 065
     Dates: start: 20210521, end: 20210616
  55. MORPHINE HYDROCHLORIDE [Concomitant]
     Active Substance: MORPHINE HYDROCHLORIDE
     Dosage: UNK
     Route: 065
     Dates: start: 20210616, end: 20210623
  56. DEXAMETHASONE [Concomitant]
     Active Substance: DEXAMETHASONE
     Indication: Product used for unknown indication
     Dosage: UNK
     Route: 065
     Dates: start: 20170104, end: 20170106
  57. DEXAMETHASONE [Concomitant]
     Active Substance: DEXAMETHASONE
     Dosage: UNK
     Route: 065
     Dates: start: 20170107, end: 20170108
  58. DEXAMETHASONE [Concomitant]
     Active Substance: DEXAMETHASONE
     Dosage: UNK
     Route: 065
     Dates: start: 20171004, end: 20171006
  59. OLEOVIT [RETINOL] [Concomitant]
     Indication: Product used for unknown indication
     Dosage: UNK
     Route: 065
     Dates: start: 20170329, end: 20210615
  60. VITAMIN C [Concomitant]
     Active Substance: ASCORBIC ACID
     Indication: Gastrointestinal disorder
     Dosage: UNK
     Route: 065
     Dates: start: 20210611, end: 20210614
  61. ELOMEL [Concomitant]
     Indication: Product used for unknown indication
     Dosage: UNK
     Route: 065
  62. CITRIC ACID MONOHYDRATE\POTASSIUM BICARBONATE\POTASSIUM CITRATE [Concomitant]
     Active Substance: CITRIC ACID MONOHYDRATE\POTASSIUM BICARBONATE\POTASSIUM CITRATE
     Indication: Product used for unknown indication
     Dosage: UNK
     Route: 048
     Dates: start: 20200427, end: 20200428
  63. NERIFORTE [Concomitant]
     Indication: Skin fissures
     Dosage: UNK
     Route: 065
     Dates: start: 20200430, end: 20200515
  64. LEUKICHTAN [COD-LIVER OIL;ICHTHAMMOL] [Concomitant]
     Indication: Product used for unknown indication
     Dosage: UNK
     Route: 061
     Dates: start: 20200430, end: 20200515
  65. PANTOPRAZOLE [Concomitant]
     Active Substance: PANTOPRAZOLE
     Indication: Product used for unknown indication
     Dosage: UNK
     Route: 065
     Dates: start: 20200506, end: 20200519
  66. PANTOPRAZOLE [Concomitant]
     Active Substance: PANTOPRAZOLE
     Dosage: UNK
     Route: 065
     Dates: start: 20170722, end: 20180327
  67. PANTOPRAZOLE [Concomitant]
     Active Substance: PANTOPRAZOLE
     Dosage: UNK
     Route: 065
     Dates: start: 20210608, end: 20210610
  68. PANTOPRAZOLE [Concomitant]
     Active Substance: PANTOPRAZOLE
     Dosage: UNK
     Route: 065
     Dates: start: 20210618, end: 20210623
  69. PANTOPRAZOLE [Concomitant]
     Active Substance: PANTOPRAZOLE
     Dosage: UNK
     Route: 065
     Dates: start: 20210317, end: 20210607
  70. PANTOPRAZOLE [Concomitant]
     Active Substance: PANTOPRAZOLE
     Dosage: 40 MG, QD
     Route: 048
     Dates: start: 20170721
  71. PANTOPRAZOLE [Concomitant]
     Active Substance: PANTOPRAZOLE
     Dosage: UNK
     Route: 048
     Dates: start: 20170722, end: 20180327
  72. PANTOPRAZOLE [Concomitant]
     Active Substance: PANTOPRAZOLE
     Dosage: UNK
     Route: 048
     Dates: start: 20200506, end: 20200519
  73. ALPRAZOLAM [Concomitant]
     Active Substance: ALPRAZOLAM
     Indication: Product used for unknown indication
     Dosage: UNK
     Route: 065
  74. PARACODIN [DIHYDROCODEINE] [Concomitant]
     Indication: Cough
     Dosage: UNK
     Route: 065
     Dates: start: 20210428, end: 20210615
  75. PARACODIN [DIHYDROCODEINE] [Concomitant]
     Dosage: 20 GTT, DROPS
     Route: 048
     Dates: start: 20170708, end: 20170709
  76. LOVENOX [Concomitant]
     Active Substance: ENOXAPARIN SODIUM
     Indication: Product used for unknown indication
     Dosage: 40 MG, QD
     Route: 065
     Dates: start: 20170224, end: 20171130
  77. SILICON [Concomitant]
     Active Substance: SILICON
     Indication: Skin fissures
     Dosage: UNK
     Route: 065
     Dates: start: 20200521, end: 20200602
  78. BUTYLSCOPOLAMINE BROMIDE [Concomitant]
     Active Substance: BUTYLSCOPOLAMINE BROMIDE
     Indication: Gastrointestinal disorder
     Dosage: UNK
     Route: 065
     Dates: start: 20210618, end: 20210618
  79. LEVOFLOXACIN [Concomitant]
     Active Substance: LEVOFLOXACIN
     Indication: Product used for unknown indication
     Dosage: UNK
     Route: 065
     Dates: start: 20200506, end: 20200512
  80. HALSET [CETYLPYRIDINIUM CHLORIDE] [Concomitant]
     Indication: Cough
     Dosage: UNK
     Route: 065
     Dates: start: 20210611, end: 20210615
  81. FENTANYL [Concomitant]
     Active Substance: FENTANYL\FENTANYL CITRATE
     Indication: Product used for unknown indication
     Dosage: UNK
     Route: 065
     Dates: start: 20200515
  82. ZIEXTENZO [Concomitant]
     Active Substance: PEGFILGRASTIM-BMEZ
     Indication: Product used for unknown indication
     Dosage: UNK
     Route: 065
     Dates: start: 20210610, end: 20210610
  83. EMEND [Concomitant]
     Active Substance: APREPITANT
     Indication: Product used for unknown indication
     Dosage: UNK
     Route: 065
     Dates: start: 20200428, end: 20200430
  84. OLIVE OIL [Concomitant]
     Active Substance: OLIVE OIL
     Indication: Paronychia
     Dosage: UNK
     Route: 065
     Dates: start: 20191002, end: 20200512
  85. EUTHYROX [Concomitant]
     Active Substance: LEVOTHYROXINE SODIUM
     Indication: Product used for unknown indication
     Dosage: 75 UG, QD
     Route: 065
     Dates: start: 20170303, end: 20210615
  86. KCL [Concomitant]
     Active Substance: POTASSIUM CHLORIDE
     Indication: Product used for unknown indication
     Dosage: 600 MG
     Route: 048
     Dates: start: 20170429, end: 20190305
  87. CARBOXYMETHYLCELLULOSE SODIUM [Concomitant]
     Active Substance: CARBOXYMETHYLCELLULOSE SODIUM
     Indication: Product used for unknown indication
     Dosage: UNK
     Route: 065
  88. PONVERIDOL [Concomitant]
     Indication: Gastrointestinal disorder
     Dosage: UNK
     Route: 065
     Dates: start: 20210618, end: 20210623
  89. POLYETHYLENE GLYCOL 3350\POTASSIUM CHLORIDE\SODIUM BICARBONATE\SODIUM [Concomitant]
     Active Substance: POLYETHYLENE GLYCOL 3350\POTASSIUM CHLORIDE\SODIUM BICARBONATE\SODIUM CHLORIDE
     Indication: Product used for unknown indication
     Dosage: UNK
     Route: 065
     Dates: start: 20210608, end: 20210616
  90. POLYETHYLENE GLYCOL 3350\POTASSIUM CHLORIDE\SODIUM BICARBONATE\SODIUM [Concomitant]
     Active Substance: POLYETHYLENE GLYCOL 3350\POTASSIUM CHLORIDE\SODIUM BICARBONATE\SODIUM CHLORIDE
     Dosage: UNK
     Route: 048
     Dates: start: 20170709, end: 20170709
  91. FUROSEMIDE [Concomitant]
     Active Substance: FUROSEMIDE
     Indication: Product used for unknown indication
     Dosage: UNK
     Route: 065
     Dates: start: 20170810, end: 20171213
  92. FUROSEMIDE [Concomitant]
     Active Substance: FUROSEMIDE
     Dosage: 40 MG
     Route: 048
     Dates: start: 20170810, end: 20190212
  93. FUROSEMIDE [Concomitant]
     Active Substance: FUROSEMIDE
     Dosage: UNK
     Route: 065
     Dates: start: 20170611, end: 20170809
  94. FUROSEMIDE [Concomitant]
     Active Substance: FUROSEMIDE
     Dosage: 20 MG
     Route: 048
     Dates: start: 20170713, end: 20170809
  95. LORAZEPAM [Concomitant]
     Active Substance: LORAZEPAM
     Indication: Product used for unknown indication
     Dosage: UNK
     Route: 065
  96. HYDROMORPHONE HYDROCHLORIDE [Concomitant]
     Active Substance: HYDROMORPHONE HYDROCHLORIDE
     Indication: Product used for unknown indication
     Dosage: UNK
     Route: 065
     Dates: start: 20210611, end: 20210615
  97. LACTULOSE [Concomitant]
     Active Substance: LACTULOSE
     Indication: Product used for unknown indication
     Dosage: UNK
     Route: 065
  98. DIPRODERM [BETAMETHASONE DIPROPIONATE] [Concomitant]
     Indication: Eczema
     Dosage: UNK
     Route: 061
     Dates: start: 20191122, end: 20191215
  99. CEFEPIME HYDROCHLORIDE [Concomitant]
     Active Substance: CEFEPIME HYDROCHLORIDE
     Indication: Product used for unknown indication
     Dosage: UNK
     Route: 065
  100. XICLAV [AMOXICILLIN TRIHYDRATE;CLAVULANATE POTASSIUM] [Concomitant]
     Indication: Product used for unknown indication
     Dosage: 1 G
     Route: 048
     Dates: start: 20181218, end: 20181222
  101. CURAM [AMOXICILLIN SODIUM;CLAVULANATE POTASSIUM] [Concomitant]
     Indication: Product used for unknown indication
     Dosage: 1 G, QD
     Route: 048
     Dates: start: 20170711, end: 20170713
  102. TRAZODONE HYDROCHLORIDE [Concomitant]
     Active Substance: TRAZODONE HYDROCHLORIDE
     Indication: Product used for unknown indication
     Dosage: UNK
     Route: 048
     Dates: start: 20190731, end: 20190910
  103. LIDOCAINE [Concomitant]
     Active Substance: LIDOCAINE
     Indication: Product used for unknown indication
     Dosage: UNK
     Route: 065
  104. HYALURONATE SODIUM [Concomitant]
     Active Substance: HYALURONATE SODIUM
     Indication: Product used for unknown indication
     Dosage: UNK
     Route: 065
  105. TRIMETHOPRIM [Concomitant]
     Active Substance: TRIMETHOPRIM
     Indication: Product used for unknown indication
     Dosage: 200 MG
     Route: 048
     Dates: start: 20190619, end: 20190623
  106. FILGRASTIM [Concomitant]
     Active Substance: FILGRASTIM
     Indication: Product used for unknown indication
     Dosage: UNK
     Route: 058
     Dates: start: 20170704, end: 20170708
  107. CALCIUM CARBONATE\VITAMIN D [Concomitant]
     Active Substance: CALCIUM CARBONATE\VITAMIN D
     Indication: Product used for unknown indication
     Dosage: UNK
     Route: 065
     Dates: start: 20170203, end: 20210612
  108. ONDANSETRON HYDROCHLORIDE [Concomitant]
     Active Substance: ONDANSETRON HYDROCHLORIDE
     Indication: Gastrointestinal disorder
     Dosage: 8 MILLIGRAM ONDANSAN
     Route: 048
     Dates: start: 20170329, end: 20170809
  109. ONDANSETRON HYDROCHLORIDE [Concomitant]
     Active Substance: ONDANSETRON HYDROCHLORIDE
     Dosage: UNK
     Route: 065
     Dates: start: 20200506
  110. ONDANSETRON HYDROCHLORIDE [Concomitant]
     Active Substance: ONDANSETRON HYDROCHLORIDE
     Dosage: UNK
     Route: 065
     Dates: start: 20210611, end: 20210616
  111. AMPHOTERICIN B [Concomitant]
     Active Substance: AMPHOTERICIN B
     Indication: Product used for unknown indication
     Dosage: UNK
     Route: 065
  112. LORAZEPAM [Concomitant]
     Active Substance: LORAZEPAM
     Indication: Product used for unknown indication
     Dosage: UNK
     Route: 065

REACTIONS (16)
  - Streptococcal sepsis [Recovered/Resolved]
  - Pseudomonal sepsis [Recovered/Resolved]
  - Brain oedema [Not Recovered/Not Resolved]
  - Vascular device infection [Recovered/Resolved]
  - Metastases to lymph nodes [Not Recovered/Not Resolved]
  - Candida infection [Not Recovered/Not Resolved]
  - Fatigue [Not Recovered/Not Resolved]
  - Pleural effusion [Recovered/Resolved]
  - C-reactive protein increased [Not Recovered/Not Resolved]
  - Restlessness [Not Recovered/Not Resolved]
  - Off label use [Unknown]
  - Nail bed inflammation [Not Recovered/Not Resolved]
  - Paronychia [Recovered/Resolved]
  - Nasal mucosal disorder [Recovered/Resolved]
  - Skin fissures [Recovered/Resolved]
  - Eczema [Not Recovered/Not Resolved]

NARRATIVE: CASE EVENT DATE: 20191101
